FAERS Safety Report 7332217-0 (Version None)
Quarter: 2011Q1

REPORT INFORMATION
  Report Type: 
  Country: None (occurrence: None)
  Receive Date: 20110304
  Receipt Date: 20110302
  Transmission Date: 20110831
  Serious: Yes (Death, Other)
  Sender: FDA-Public Use
  Company Number: FR-ROCHE-730458

PATIENT
  Sex: Female
  Weight: 90 kg

DRUGS (6)
  1. OROKEN [Concomitant]
  2. PRAVASTATIN [Concomitant]
  3. ARIMIDEX [Concomitant]
  4. HERCEPTIN [Interacting]
     Indication: BREAST CANCER
     Route: 065
  5. AVLOCARDYL [Concomitant]
  6. ROCEPHIN [Suspect]
     Indication: PYELONEPHRITIS
     Route: 042
     Dates: start: 20100929, end: 20100929

REACTIONS (3)
  - ANGIOEDEMA [None]
  - ANAPHYLACTIC SHOCK [None]
  - DRUG INTERACTION [None]
